FAERS Safety Report 5653425-0 (Version None)
Quarter: 2008Q1

REPORT INFORMATION
  Report Type: 
  Country: None (occurrence: None)
  Receive Date: 20080306
  Receipt Date: 20080229
  Transmission Date: 20080703
  Serious: Yes (Other)
  Sender: FDA-Public Use
  Company Number: B0502562A

PATIENT
  Age: 34 Year
  Sex: Male

DRUGS (4)
  1. CLAMOXYL [Suspect]
     Indication: DISEASE RECURRENCE
     Dosage: 1UNIT SINGLE DOSE
     Route: 048
     Dates: start: 20071001, end: 20071001
  2. CLAMOXYL [Suspect]
     Indication: RESPIRATORY TRACT INFECTION
     Dosage: 1UNIT SINGLE DOSE
     Route: 048
     Dates: start: 20071001, end: 20071001
  3. ANTI INFLAMMATORY DRUG [Concomitant]
     Dates: start: 20071001
  4. ACETAMINOPHEN [Concomitant]
     Dates: start: 20071001

REACTIONS (8)
  - ANAPHYLACTIC REACTION [None]
  - BLOOD PRESSURE DECREASED [None]
  - DIZZINESS [None]
  - DYSPHONIA [None]
  - DYSPNOEA [None]
  - ERYTHEMA [None]
  - FACE OEDEMA [None]
  - PARAESTHESIA [None]
